FAERS Safety Report 5053849-9 (Version None)
Quarter: 2006Q3

REPORT INFORMATION
  Report Type: 
  Country: None (occurrence: None)
  Receive Date: 20060718
  Receipt Date: 20060711
  Transmission Date: 20061208
  Serious: Yes (Hospitalization)
  Sender: FDA-Public Use
  Company Number: 453719

PATIENT
  Age: 67 Year
  Sex: Male

DRUGS (5)
  1. CARVEDILOL [Suspect]
     Dosage: 1.25MG TWICE PER DAY
     Route: 048
     Dates: start: 20030716, end: 20030922
  2. FRANDOL [Concomitant]
  3. MICARDIS [Concomitant]
  4. DIART [Concomitant]
  5. WARFARIN SODIUM [Concomitant]

REACTIONS (3)
  - CARDIAC FAILURE [None]
  - PLEURAL EFFUSION [None]
  - WEIGHT INCREASED [None]
